FAERS Safety Report 9821118 (Version 4)
Quarter: 2014Q2

REPORT INFORMATION
  Report Type: Report from Study
  Country: US (occurrence: US)
  Receive Date: 20140116
  Receipt Date: 20140404
  Transmission Date: 20141212
  Serious: No
  Sender: FDA-Public Use
  Company Number: US-ELI_LILLY_AND_COMPANY-US201310004320

PATIENT
  Age: 59 Year
  Sex: Female
  Weight: 81.6 kg

DRUGS (3)
  1. DULOXETINE HYDROCHLORIDE [Suspect]
     Indication: FIBROMYALGIA
     Dosage: 30 MG, UNK
     Route: 065
     Dates: start: 201306
  2. DULOXETINE HYDROCHLORIDE [Suspect]
     Dosage: 60 MG, QD
     Route: 065
     Dates: start: 20130923
  3. DULOXETINE HYDROCHLORIDE [Suspect]
     Dosage: 30 MG, QOD
     Route: 065
     Dates: end: 201310

REACTIONS (10)
  - Memory impairment [Not Recovered/Not Resolved]
  - Daydreaming [Not Recovered/Not Resolved]
  - Urticaria [Not Recovered/Not Resolved]
  - Pruritus generalised [Recovered/Resolved]
  - Nausea [Not Recovered/Not Resolved]
  - Dizziness [Not Recovered/Not Resolved]
  - Drug dose omission [Unknown]
  - Hepatic enzyme increased [Not Recovered/Not Resolved]
  - Malaise [Not Recovered/Not Resolved]
  - Ear pain [Not Recovered/Not Resolved]
